FAERS Safety Report 8380906-1 (Version None)
Quarter: 2012Q2

REPORT INFORMATION
  Report Type: 
  Country: None (occurrence: None)
  Receive Date: 20120523
  Receipt Date: 20120516
  Transmission Date: 20120825
  Serious: Yes (Hospitalization, Disabling, Other)
  Sender: FDA-Public Use
  Company Number: US-MERCK-1203USA03300

PATIENT
  Age: 54 Year
  Sex: Female

DRUGS (4)
  1. FOSAMAX [Suspect]
     Route: 048
     Dates: start: 20010301, end: 20050701
  2. VITAMINS (UNSPECIFIED) [Concomitant]
     Route: 065
  3. FOSAMAX [Suspect]
     Indication: OSTEOPOROSIS
     Route: 048
     Dates: start: 20000501, end: 20010301
  4. HORMONES (UNSPECIFIED) [Concomitant]
     Route: 048
     Dates: start: 19720101, end: 20080101

REACTIONS (11)
  - FEMUR FRACTURE [None]
  - ARTHROPATHY [None]
  - PAIN IN EXTREMITY [None]
  - GINGIVAL INFECTION [None]
  - BONE DISORDER [None]
  - GINGIVAL DISORDER [None]
  - UPPER LIMB FRACTURE [None]
  - FALL [None]
  - TOOTH ABSCESS [None]
  - TOOTH DISORDER [None]
  - PELVIC FRACTURE [None]
